FAERS Safety Report 9143070 (Version 1)
Quarter: 2013Q1

REPORT INFORMATION
  Report Type: Spontaneous
  Country: FR (occurrence: FR)
  Receive Date: 20130306
  Receipt Date: 20130306
  Transmission Date: 20140127
  Serious: Yes (Hospitalization)
  Sender: FDA-Public Use
  Company Number: FR-NOVOPROD-372211

PATIENT
  Age: 75 Year
  Sex: Female

DRUGS (9)
  1. VICTOZA [Suspect]
     Indication: PRODUCT USED FOR UNKNOWN INDICATION
     Dosage: UNK
     Route: 058
     Dates: end: 20130110
  2. VALSARTAN [Suspect]
     Dosage: UNK
     Route: 048
     Dates: end: 20130109
  3. LODOZ [Suspect]
     Route: 048
     Dates: end: 20130110
  4. ZYLORIC [Suspect]
     Route: 048
     Dates: end: 20130111
  5. CRESTOR [Suspect]
     Route: 048
     Dates: end: 20130110
  6. EUPRESSYL [Suspect]
     Dates: end: 20130109
  7. LEVOTHYROX [Concomitant]
  8. INEXIUM /01479302/ [Concomitant]
  9. STRESAM [Concomitant]

REACTIONS (2)
  - Hypotension [Recovering/Resolving]
  - Malaise [Recovered/Resolved]
